FAERS Safety Report 4938712-3 (Version None)
Quarter: 2006Q1

REPORT INFORMATION
  Report Type: 
  Country: None (occurrence: None)
  Receive Date: 20060127
  Receipt Date: 20051107
  Transmission Date: 20060701
  Serious: Yes (Other)
  Sender: FDA-Public Use
  Company Number: 2005153537

PATIENT
  Sex: Female

DRUGS (1)
  1. LYRICA [Suspect]
     Indication: PAIN
     Dosage: 25 MG (25 MG, 3 IN 1 AS NECESSARY)
     Dates: start: 20050101

REACTIONS (2)
  - ACTIVITIES OF DAILY LIVING IMPAIRED [None]
  - SOMNOLENCE [None]
